FAERS Safety Report 21199561 (Version 4)
Quarter: 2023Q1

REPORT INFORMATION
  Report Type: Spontaneous
  Country: CA (occurrence: CA)
  Receive Date: 20220811
  Receipt Date: 20230206
  Transmission Date: 20230418
  Serious: Yes (Other)
  Sender: FDA-Public Use
  Company Number: CA-CELLTRION INC.-2022CA009884

PATIENT

DRUGS (6)
  1. INFLECTRA [Suspect]
     Active Substance: INFLIXIMAB-DYYB
     Indication: Crohn^s disease
     Dosage: 400 MG, INDUCTION WEEK 0, 2 AND 6 THEN Q 8 WEEKS, EVERY 8 WEEKS
     Route: 042
     Dates: start: 20220613
  2. INFLECTRA [Suspect]
     Active Substance: INFLIXIMAB-DYYB
     Dosage: 400 MG, INDUCTION WEEK 0, 2 AND 6 THEN Q 8 WEEKS
     Route: 042
     Dates: start: 20220628
  3. INFLECTRA [Suspect]
     Active Substance: INFLIXIMAB-DYYB
     Dosage: 400 MG, INDUCTION WEEK 0, 2 AND 6 THEN Q 8 WEEKS, EVERY 8 WEEKS
     Route: 042
     Dates: start: 20220729
  4. INFLECTRA [Suspect]
     Active Substance: INFLIXIMAB-DYYB
     Dosage: 400 MG, INDUCTION WEEK 0, 2 AND 6 THEN Q 8 WEEKS,
     Route: 042
     Dates: start: 20220920
  5. INFLECTRA [Suspect]
     Active Substance: INFLIXIMAB-DYYB
     Dosage: 400 MG (400 MG Q 8 WEEKS)
     Route: 042
     Dates: start: 20230112
  6. INFLECTRA [Suspect]
     Active Substance: INFLIXIMAB-DYYB
     Dosage: NOT YET STARTED  / MD ASKED TO DECREASE INFLECTRA FREQUENCY TO Q 7 WEEKS.
     Route: 042

REACTIONS (7)
  - Weight increased [Unknown]
  - Off label use [Unknown]
  - Off label use [Unknown]
  - Intentional product use issue [Unknown]
  - Acne [Unknown]
  - Breast mass [Unknown]
  - Tonsillitis [Unknown]

NARRATIVE: CASE EVENT DATE: 20220101
